FAERS Safety Report 24296752 (Version 1)
Quarter: 2024Q3

REPORT INFORMATION
  Report Type: Report from Study
  Country: CA (occurrence: CA)
  Receive Date: 20240909
  Receipt Date: 20240909
  Transmission Date: 20241017
  Serious: Yes (Other)
  Sender: SANDOZ
  Company Number: CA-SANDOZ-SDZ2023CA021225

PATIENT
  Sex: Male

DRUGS (2)
  1. HYRIMOZ [Suspect]
     Active Substance: ADALIMUMAB-ADAZ
     Dosage: 40 MG, QW, WEEKLY;WEEKLY
     Route: 058
     Dates: start: 20220401
  2. HYRIMOZ [Suspect]
     Active Substance: ADALIMUMAB-ADAZ
     Indication: Crohn^s disease
     Dosage: 40 MG , WEEKLY;
     Route: 058

REACTIONS (6)
  - Skin cancer [Unknown]
  - Surgery [Unknown]
  - Arthralgia [Unknown]
  - Burning sensation [Unknown]
  - Off label use [Unknown]
  - Product substitution [Unknown]
